FAERS Safety Report 15018080 (Version 1)
Quarter: 2018Q2

REPORT INFORMATION
  Report Type: Spontaneous
  Country: ES (occurrence: ES)
  Receive Date: 20180615
  Receipt Date: 20180615
  Transmission Date: 20180711
  Serious: Yes (Hospitalization)
  Sender: FDA-Public Use
  Company Number: ES-TEVA-2018-ES-907526

PATIENT
  Age: 86 Year
  Sex: Male

DRUGS (3)
  1. MEMANTINE. [Suspect]
     Active Substance: MEMANTINE
     Indication: DEMENTIA ALZHEIMER^S TYPE
     Dosage: 20 MILLIGRAM DAILY;
     Route: 048
     Dates: start: 20160629
  2. MOVICOL 13,8G SOBRES POLVOPARA SOLUCION ORAL 30 [Concomitant]
     Route: 048
     Dates: start: 20160629
  3. TIMOLOL (1158A) [Concomitant]
     Active Substance: TIMOLOL
     Indication: GLAUCOMA
     Dosage: 0,5% (5ML/ML) COLIRIO 1ML:1.0.1
     Route: 047
     Dates: start: 20110101

REACTIONS (1)
  - Volvulus [Recovered/Resolved with Sequelae]

NARRATIVE: CASE EVENT DATE: 20170612
